FAERS Safety Report 19691560 (Version 1)
Quarter: 2021Q3

REPORT INFORMATION
  Report Type: Spontaneous
  Country: US (occurrence: US)
  Receive Date: 20210812
  Receipt Date: 20210812
  Transmission Date: 20211014
  Serious: Yes (Hospitalization)
  Sender: FDA-Public Use
  Company Number: US-PROCTER_AND_GAMBLE-GS21072654

PATIENT
  Age: 1 Year
  Sex: Male

DRUGS (1)
  1. CREST [Suspect]
     Active Substance: SODIUM FLUORIDE
     Dosage: ^CHOKED LAST NIGHT^
     Route: 048
     Dates: start: 20210802, end: 20210802

REACTIONS (3)
  - Choking [Recovering/Resolving]
  - Accidental exposure to product by child [Unknown]
  - Exposure via ingestion [Unknown]

NARRATIVE: CASE EVENT DATE: 20210802
